FAERS Safety Report 13975873 (Version 5)
Quarter: 2017Q4

REPORT INFORMATION
  Report Type: Report from Study
  Country: None (occurrence: TW)
  Receive Date: 20170915
  Receipt Date: 20171024
  Transmission Date: 20180321
  Serious: Yes (Hospitalization)
  Sender: FDA-Public Use
  Company Number: TW-ABBVIE-17K-153-2099104-00

PATIENT
  Age: 56 Year
  Sex: Male
  Weight: 55 kg

DRUGS (1)
  1. HUMIRA [Suspect]
     Active Substance: ADALIMUMAB
     Indication: CROHN^S DISEASE
     Route: 058
     Dates: start: 20151029

REACTIONS (2)
  - Ureterolithiasis [Recovering/Resolving]
  - Urinary tract disorder [Recovering/Resolving]

NARRATIVE: CASE EVENT DATE: 20170827
